FAERS Safety Report 13899820 (Version 1)
Quarter: 2017Q3

REPORT INFORMATION
  Report Type: Spontaneous
  Country: US (occurrence: US)
  Receive Date: 20170823
  Receipt Date: 20170823
  Transmission Date: 20171127
  Serious: No
  Sender: FDA-Public Use
  Company Number: GXBR2017US002158

PATIENT
  Sex: Male

DRUGS (1)
  1. MIDODRINE HYDROCHLORIDE TABLETS [Suspect]
     Active Substance: MIDODRINE HYDROCHLORIDE
     Indication: ORTHOSTATIC HYPERTENSION
     Dosage: 2.5 MG, UNK
     Route: 065

REACTIONS (4)
  - Fluid retention [Unknown]
  - Blister [Unknown]
  - Swelling [Unknown]
  - Rash [Unknown]
